FAERS Safety Report 5282816-5 (Version None)
Quarter: 2007Q2

REPORT INFORMATION
  Report Type: 
  Country: None (occurrence: None)
  Receive Date: 20070402
  Receipt Date: 20070326
  Transmission Date: 20071010
  Serious: Yes (Other)
  Sender: FDA-Public Use
  Company Number: US-BAYER-200710440BCC

PATIENT
  Age: 73 Year
  Sex: Female
  Weight: 61 kg

DRUGS (9)
  1. ASPIRIN [Suspect]
     Indication: CARDIOVASCULAR EVENT PROPHYLAXIS
     Dosage: UNIT DOSE: 81 MG
     Route: 048
  2. ASPIRIN [Suspect]
     Route: 048
     Dates: start: 20020101
  3. ASPIRIN [Suspect]
     Indication: DRUG USE FOR UNKNOWN INDICATION
     Route: 048
  4. SYNTHROID [Concomitant]
  5. NEXIUM [Concomitant]
  6. LESCOL [Concomitant]
  7. SEDEVIL [Concomitant]
  8. XANAX [Concomitant]
  9. PLAVIX [Concomitant]
     Route: 048
     Dates: start: 19990101

REACTIONS (3)
  - ABDOMINAL DISCOMFORT [None]
  - CHOLELITHIASIS [None]
  - DYSPEPSIA [None]
